FAERS Safety Report 4564223-3 (Version None)
Quarter: 2005Q1

REPORT INFORMATION
  Report Type: 
  Country: None (occurrence: None)
  Receive Date: 20050126
  Receipt Date: 20050117
  Transmission Date: 20050727
  Serious: Yes (Hospitalization)
  Sender: FDA-Public Use
  Company Number: 2004-12-1232

PATIENT
  Age: 61 Year
  Sex: Female
  Weight: 50 kg

DRUGS (8)
  1. PEG-INTRON [Suspect]
     Indication: HEPATITIS C
     Dosage: SEE IMAGE, SUBCUTANEOUS
     Route: 058
     Dates: start: 20041209, end: 20041216
  2. PEG-INTRON [Suspect]
     Indication: HEPATITIS C
     Dosage: SEE IMAGE, SUBCUTANEOUS
     Route: 058
     Dates: start: 20041209, end: 20041224
  3. PEG-INTRON [Suspect]
     Indication: HEPATITIS C
     Dosage: SEE IMAGE, SUBCUTANEOUS
     Route: 058
     Dates: start: 20041223, end: 20041224
  4. URSO TABLETS [Concomitant]
  5. AMLODIPINE BESILATE TABLETS [Concomitant]
  6. ALOSENN GRANULES [Concomitant]
  7. METHYCOBAL TABLETS [Concomitant]
  8. HALCION [Concomitant]

REACTIONS (13)
  - AURICULAR SWELLING [None]
  - BLISTER [None]
  - BLOOD ALBUMIN DECREASED [None]
  - DIZZINESS [None]
  - ERYTHEMA [None]
  - HAEMATOCRIT DECREASED [None]
  - HERPES VIRUS INFECTION [None]
  - IMMUNE SYSTEM DISORDER [None]
  - INFLAMMATION [None]
  - PLATELET COUNT DECREASED [None]
  - TREMOR [None]
  - VESTIBULAR DISORDER [None]
  - WHITE BLOOD CELL COUNT DECREASED [None]
